FAERS Safety Report 24200877 (Version 1)
Quarter: 2024Q3

REPORT INFORMATION
  Report Type: Spontaneous
  Country: US (occurrence: US)
  Receive Date: 20240812
  Receipt Date: 20240812
  Transmission Date: 20241016
  Serious: No
  Sender: SANOFI AVENTIS
  Company Number: US-SA-SAC20240808000887

PATIENT
  Age: 75 Year
  Sex: Male

DRUGS (1)
  1. DUPIXENT [Suspect]
     Active Substance: DUPILUMAB
     Indication: Eczema
     Dosage: 600 MG, 1X
     Route: 058
     Dates: start: 20240705, end: 20240705

REACTIONS (4)
  - Eczema [Unknown]
  - Pruritus [Unknown]
  - Blister [Unknown]
  - Skin fissures [Unknown]

NARRATIVE: CASE EVENT DATE: 20240701
